FAERS Safety Report 7998370-0 (Version None)
Quarter: 2011Q4

REPORT INFORMATION
  Report Type: 
  Country: None (occurrence: None)
  Receive Date: 20111221
  Receipt Date: 20110818
  Transmission Date: 20120403
  Serious: No
  Sender: FDA-Public Use
  Company Number: US-GLAXOSMITHKLINE-A0941561A

PATIENT
  Age: 64 Year
  Sex: Female

DRUGS (12)
  1. HYDROCODONE [Concomitant]
  2. LOVAZA [Suspect]
     Indication: BLOOD TRIGLYCERIDES INCREASED
     Dosage: 2CAP PER DAY
     Route: 048
     Dates: start: 20110501
  3. ONGLYZA [Concomitant]
  4. CYMBALTA [Concomitant]
  5. NEURONTIN [Concomitant]
  6. METOPROLOL SUCCINATE [Concomitant]
  7. HUMIRA [Concomitant]
  8. GLIMEPIRIDE [Concomitant]
  9. TRIAMTERENE AND HYDROCHLOROTHIAZIDE [Concomitant]
  10. LIPITOR [Concomitant]
  11. UNSPECIFIED DRUG [Concomitant]
  12. AMLODIPINE BESYLATE [Concomitant]

REACTIONS (1)
  - THERAPEUTIC RESPONSE UNEXPECTED [None]
